FAERS Safety Report 4611633-1 (Version None)
Quarter: 2005Q1

REPORT INFORMATION
  Report Type: 
  Country: None (occurrence: None)
  Receive Date: 20050316
  Receipt Date: 20050316
  Transmission Date: 20050727
  Serious: Yes (Hospitalization)
  Sender: FDA-Public Use
  Company Number: None

PATIENT
  Age: 76 Year
  Sex: Male
  Weight: 71.2147 kg

DRUGS (4)
  1. TEQUIN [Suspect]
     Indication: PNEUMONIA
     Dosage: PO 400MG DAILY
     Route: 048
     Dates: start: 20040521, end: 20040524
  2. GLYBURIDE [Concomitant]
  3. METFORMIN HCL [Concomitant]
  4. METOPROLOL TARTRATE [Concomitant]

REACTIONS (1)
  - HYPERGLYCAEMIA [None]
